FAERS Safety Report 16321660 (Version 1)
Quarter: 2019Q2

REPORT INFORMATION
  Report Type: Spontaneous
  Country: US (occurrence: US)
  Receive Date: 20190516
  Receipt Date: 20190516
  Transmission Date: 20190711
  Serious: No
  Sender: FDA-Public Use
  Company Number: US-AKRON, INC.-2067097

PATIENT
  Age: 39 Year
  Sex: Male

DRUGS (1)
  1. CLOBETASOL PROPIONATE OINTMENT 0.05% [Suspect]
     Active Substance: CLOBETASOL PROPIONATE
     Indication: RASH PAPULAR
     Route: 061

REACTIONS (7)
  - Skin burning sensation [Recovering/Resolving]
  - Pseudofolliculitis [Recovering/Resolving]
  - Pruritus [Recovering/Resolving]
  - Acne [Recovering/Resolving]
  - Skin discolouration [Recovering/Resolving]
  - Off label use [Recovering/Resolving]
  - Rash [Recovering/Resolving]
